FAERS Safety Report 7889815-5 (Version None)
Quarter: 2011Q4

REPORT INFORMATION
  Report Type: 
  Country: None (occurrence: None)
  Receive Date: 20111103
  Receipt Date: 20110307
  Transmission Date: 20120403
  Serious: Yes (Hospitalization)
  Sender: FDA-Public Use
  Company Number: US-GLAXOSMITHKLINE-A0917665A

PATIENT
  Age: 66 Year
  Sex: Male

DRUGS (1)
  1. ROSIGLITAZONE MALEATE [Suspect]
     Indication: DIABETES MELLITUS
     Dosage: 2MG TWICE PER DAY
     Route: 048
     Dates: start: 20060501, end: 20080501

REACTIONS (2)
  - CEREBRAL HAEMORRHAGE [None]
  - CARDIOVASCULAR DISORDER [None]
